FAERS Safety Report 8398655-2 (Version None)
Quarter: 2012Q2

REPORT INFORMATION
  Report Type: 
  Country: None (occurrence: None)
  Receive Date: 20120531
  Receipt Date: 20120522
  Transmission Date: 20120825
  Serious: Yes (Hospitalization)
  Sender: FDA-Public Use
  Company Number: BR-ASTRAZENECA-2012SE33595

PATIENT
  Age: 56 Year
  Sex: Female
  Weight: 60 kg

DRUGS (3)
  1. SYMBICORT [Suspect]
     Dosage: 160/4.5 MCG 5 INHALATIONS/DAYS
     Route: 055
     Dates: start: 20010101
  2. SINGULAIR [Concomitant]
  3. SYMBICORT [Suspect]
     Indication: CHRONIC OBSTRUCTIVE PULMONARY DISEASE
     Dosage: 320/9 MCG 3 DOSES WITH UNKNOWN FREQUENCY
     Route: 055

REACTIONS (4)
  - OESOPHAGITIS [None]
  - PLEURAL EFFUSION [None]
  - INFLAMMATION [None]
  - DYSPNOEA [None]
